FAERS Safety Report 5228230-X (Version None)
Quarter: 2007Q1

REPORT INFORMATION
  Report Type: 
  Country: None (occurrence: None)
  Receive Date: 20070205
  Receipt Date: 20070124
  Transmission Date: 20070707
  Serious: Yes (Other)
  Sender: FDA-Public Use
  Company Number: HQWYE446124JAN07

PATIENT
  Age: 96 Year
  Sex: Male
  Weight: 73 kg

DRUGS (6)
  1. CORDARONE [Suspect]
     Indication: ATRIAL FIBRILLATION
     Dosage: 150 MG WITH 0.9% SODIUM CHLORIDE INJECTION 100 ML VIA INTRAVENOUS DRIP }10 MINUTES
     Route: 042
     Dates: start: 20041026, end: 20041026
  2. CORDARONE [Suspect]
     Dosage: 300 MG WITH 44 ML 0.9% SODIUM CHLORIDE INJECTION VIA MICRO BUMP 5 ML/H
     Route: 042
     Dates: start: 20041026, end: 20041026
  3. CORDARONE [Suspect]
     Dosage: 300 MG WITH 44 ML 0.9% SODIUM CHLORIDE BID AT SPEED ^5-10 5 ML/H^
     Route: 042
     Dates: start: 20041027, end: 20041027
  4. CORDARONE [Suspect]
     Dosage: 300 MG WITH 44 ML 0.9% SODIUM CHLORIDE AT SPEED ^5-10 5 ML/H^
     Route: 042
     Dates: start: 20041028, end: 20041029
  5. LANATOSIDE C [Concomitant]
     Indication: ATRIAL FIBRILLATION
     Dosage: 0.4 MG
     Route: 042
     Dates: start: 20041026, end: 20041026
  6. PROPAFENONE HCL [Concomitant]
     Indication: ARRHYTHMIA
     Dosage: 35 MG TWICE
     Route: 042
     Dates: start: 20041026, end: 20041026

REACTIONS (2)
  - PHLEBITIS [None]
  - WRONG TECHNIQUE IN DRUG USAGE PROCESS [None]
